FAERS Safety Report 4681297-X (Version None)
Quarter: 2005Q2

REPORT INFORMATION
  Report Type: 
  Country: None (occurrence: None)
  Receive Date: 20050603
  Receipt Date: 20050524
  Transmission Date: 20051028
  Serious: Yes (Disabling)
  Sender: FDA-Public Use
  Company Number: US-ROCHE-405825

PATIENT
  Age: 59 Year
  Sex: Female
  Weight: 55.8 kg

DRUGS (15)
  1. COPEGUS [Suspect]
     Indication: HEPATITIS C
     Route: 048
     Dates: start: 20040115, end: 20040408
  2. PEG-INTRON [Suspect]
     Indication: HEPATITIS C
     Route: 058
     Dates: start: 20040115, end: 20040408
  3. TAGAMET [Concomitant]
     Route: 048
     Dates: start: 19980428, end: 20040415
  4. PAROXETINE HCL [Concomitant]
     Route: 048
     Dates: start: 19990930
  5. XANAX [Concomitant]
     Dosage: TAKEN PER PRN.
     Route: 048
     Dates: start: 20011116
  6. BECLOMETHASONE DIPROPIONATE [Concomitant]
     Dosage: ROUTE: NASAL,SPRAY.
     Dates: start: 20021127
  7. ALLEGRA [Concomitant]
     Dosage: FORM: PACK.
     Dates: start: 20021127
  8. VITAMIN B-12 [Concomitant]
  9. VITAMIN E [Concomitant]
  10. CALCIUM GLUCONATE [Concomitant]
  11. VITAMINE D [Concomitant]
  12. VIOXX [Concomitant]
  13. LORATADINE [Concomitant]
  14. BLACK COHOSH [Concomitant]
  15. PROPOXYPHENE NAPSYLATE AND ACETAMINOPHEN [Concomitant]
     Dates: start: 20021127

REACTIONS (18)
  - ACTIVATED PARTIAL THROMBOPLASTIN TIME PROLONGED [None]
  - ARTHRALGIA [None]
  - BLINDNESS [None]
  - CATARACT [None]
  - CHEST PAIN [None]
  - CHRONIC OBSTRUCTIVE PULMONARY DISEASE [None]
  - EPISTAXIS [None]
  - HEADACHE [None]
  - INTERVERTEBRAL DISC DEGENERATION [None]
  - OCCULT BLOOD POSITIVE [None]
  - OPTIC ATROPHY [None]
  - OPTIC ISCHAEMIC NEUROPATHY [None]
  - PAPILLOEDEMA [None]
  - PNEUMONIA [None]
  - RADICULAR PAIN [None]
  - RASH [None]
  - SCOTOMA [None]
  - WEIGHT DECREASED [None]
